FAERS Safety Report 16338519 (Version 1)
Quarter: 2019Q2

REPORT INFORMATION
  Report Type: Spontaneous
  Country: US (occurrence: US)
  Receive Date: 20190521
  Receipt Date: 20190521
  Transmission Date: 20190711
  Serious: Yes (Other)
  Sender: FDA-Public Use
  Company Number: US-BAYER-2019-098181

PATIENT
  Age: 52 Year
  Sex: Female

DRUGS (1)
  1. BETASERON [Suspect]
     Active Substance: INTERFERON BETA-1B
     Indication: MULTIPLE SCLEROSIS
     Dosage: 0.3 MG
     Dates: start: 201405

REACTIONS (10)
  - Multiple sclerosis relapse [None]
  - Pain [None]
  - Injection site rash [None]
  - Headache [None]
  - Pyrexia [None]
  - Vertigo [None]
  - Headache [None]
  - Hypoaesthesia [None]
  - Paraesthesia [None]
  - Diverticulitis [None]

NARRATIVE: CASE EVENT DATE: 2014
